FAERS Safety Report 22534916 (Version 1)
Quarter: 2023Q2

REPORT INFORMATION
  Report Type: Spontaneous
  Country: US (occurrence: US)
  Receive Date: 20230608
  Receipt Date: 20230608
  Transmission Date: 20230722
  Serious: Yes (Life-Threatening, Hospitalization)
  Sender: FDA-Public Use
  Company Number: US-drreddys-LIT/USA/23/0166593

PATIENT
  Age: 65 Year
  Sex: Male

DRUGS (20)
  1. DEXAMETHASONE [Suspect]
     Active Substance: DEXAMETHASONE
     Indication: T-cell type acute leukaemia
     Dosage: 3 CYCLES
  2. DEXAMETHASONE [Suspect]
     Active Substance: DEXAMETHASONE
     Dosage: ONE CYCLE
  3. DEXAMETHASONE [Suspect]
     Active Substance: DEXAMETHASONE
     Dosage: SECOND CYCLE
  4. DECITABINE [Suspect]
     Active Substance: DECITABINE
     Indication: T-cell type acute leukaemia
     Dosage: ON DAYS 1-5 IN 28 DAY CYCLES
     Route: 042
  5. VINCRISTINE [Suspect]
     Active Substance: VINCRISTINE
     Indication: T-cell type acute leukaemia
     Dosage: 3 CYCLES
  6. VINCRISTINE [Suspect]
     Active Substance: VINCRISTINE
     Dosage: ONE CYCLE
  7. VINCRISTINE [Suspect]
     Active Substance: VINCRISTINE
     Dosage: SECOND CYCLE
  8. CLADRIBINE [Suspect]
     Active Substance: CLADRIBINE
     Indication: T-cell type acute leukaemia
     Dosage: ONE CYCLE
  9. CLADRIBINE [Suspect]
     Active Substance: CLADRIBINE
     Dosage: SECOND CYCLE
  10. CYTARABINE [Suspect]
     Active Substance: CYTARABINE
     Indication: T-cell type acute leukaemia
     Dosage: ONE CYCLE
  11. CYTARABINE [Suspect]
     Active Substance: CYTARABINE
     Dosage: SECOND CYCLE
  12. FILGRASTIM [Suspect]
     Active Substance: FILGRASTIM
     Indication: T-cell type acute leukaemia
     Dosage: ONE CYCLE
  13. FILGRASTIM [Suspect]
     Active Substance: FILGRASTIM
     Dosage: SECOND CYCLE
  14. MITOXANTRONE [Suspect]
     Active Substance: MITOXANTRONE HYDROCHLORIDE
     Indication: T-cell type acute leukaemia
     Dosage: ONE CYCLE
  15. MITOXANTRONE [Suspect]
     Active Substance: MITOXANTRONE HYDROCHLORIDE
     Dosage: SECOND CYCLE
  16. VENETOCLAX [Suspect]
     Active Substance: VENETOCLAX
     Indication: T-cell type acute leukaemia
     Route: 048
  17. DOXORUBICIN [Suspect]
     Active Substance: DOXORUBICIN
     Indication: T-cell type acute leukaemia
     Dosage: 3 CYCLES
  18. CYCLOPHOSPHAMIDE [Suspect]
     Active Substance: CYCLOPHOSPHAMIDE
     Indication: T-cell type acute leukaemia
     Dosage: 3 CYCLES
  19. METHOTREXATE [Suspect]
     Active Substance: METHOTREXATE
     Indication: T-cell type acute leukaemia
     Dosage: 3 CYCLES
  20. CYTARABINE [Suspect]
     Active Substance: CYTARABINE
     Indication: T-cell type acute leukaemia
     Dosage: 3 CYCLES

REACTIONS (5)
  - Neutropenic sepsis [Recovered/Resolved]
  - Neutropenia [Recovered/Resolved]
  - Thrombocytopenia [Recovered/Resolved]
  - Graft versus host disease [Unknown]
  - Product use in unapproved indication [Unknown]
